APPROVED DRUG PRODUCT: DANAZOL
Active Ingredient: DANAZOL
Strength: 200MG
Dosage Form/Route: CAPSULE;ORAL
Application: A074582 | Product #001 | TE Code: AB
Applicant: BARR LABORATORIES INC
Approved: Aug 9, 1996 | RLD: No | RS: Yes | Type: RX